FAERS Safety Report 26130483 (Version 1)
Quarter: 2025Q4

REPORT INFORMATION
  Report Type: Spontaneous
  Country: EU (occurrence: EU)
  Receive Date: 20251208
  Receipt Date: 20251208
  Transmission Date: 20260118
  Serious: Yes (Death, Other)
  Sender: JOHNSON AND JOHNSON
  Company Number: EU-AMGEN-AUTSP2025236493

PATIENT
  Age: 64 Year
  Sex: Female

DRUGS (2)
  1. TECLISTAMAB [Suspect]
     Active Substance: TECLISTAMAB
     Indication: Plasma cell myeloma
     Dosage: UNK
     Route: 058
  2. CARFILZOMIB [Suspect]
     Active Substance: CARFILZOMIB
     Indication: Plasma cell myeloma
     Dosage: UNK

REACTIONS (10)
  - Death [Fatal]
  - Pseudomonal sepsis [Unknown]
  - Haemophagocytic lymphohistiocytosis [Unknown]
  - Status epilepticus [Unknown]
  - Plasma cell myeloma [Unknown]
  - Cytokine release syndrome [Unknown]
  - Immune effector cell-associated neurotoxicity syndrome [Unknown]
  - Depressed level of consciousness [Unknown]
  - Gait disturbance [Unknown]
  - Diplopia [Unknown]

NARRATIVE: CASE EVENT DATE: 20230701
